FAERS Safety Report 17973626 (Version 1)
Quarter: 2020Q3

REPORT INFORMATION
  Report Type: Spontaneous
  Country: US (occurrence: US)
  Receive Date: 20200702
  Receipt Date: 20200702
  Transmission Date: 20201103
  Serious: Yes (Hospitalization)
  Sender: FDA-Public Use
  Company Number: None

PATIENT
  Age: 63 Year
  Sex: Female
  Weight: 88.1 kg

DRUGS (1)
  1. REMDESIVIR. [Suspect]
     Active Substance: REMDESIVIR
     Indication: SARS-COV-2 TEST POSITIVE
     Dates: start: 20200602, end: 20200606

REACTIONS (4)
  - Therapy interrupted [None]
  - Renal impairment [None]
  - Dialysis [None]
  - Respiratory distress [None]

NARRATIVE: CASE EVENT DATE: 20200603
